FAERS Safety Report 8418839-4 (Version None)
Quarter: 2012Q2

REPORT INFORMATION
  Report Type: 
  Country: None (occurrence: None)
  Receive Date: 20120607
  Receipt Date: 20120604
  Transmission Date: 20120825
  Serious: Yes (Other)
  Sender: FDA-Public Use
  Company Number: CN-ROCHE-1075593

PATIENT

DRUGS (1)
  1. XELODA [Suspect]
     Indication: RECTAL CANCER

REACTIONS (2)
  - GASTROINTESTINAL DISORDER [None]
  - BONE MARROW FAILURE [None]
